FAERS Safety Report 24094154 (Version 5)
Quarter: 2024Q4

REPORT INFORMATION
  Report Type: Report from Study
  Country: MX (occurrence: MX)
  Receive Date: 20240716
  Receipt Date: 20241014
  Transmission Date: 20250115
  Serious: Yes (Other)
  Sender: NOVARTIS
  Company Number: MX-002147023-NVSC2024MX144930

PATIENT
  Sex: Female

DRUGS (2)
  1. GILENYA [Suspect]
     Active Substance: FINGOLIMOD HYDROCHLORIDE
     Indication: Multiple sclerosis
     Dosage: 1 DOSAGE FORM, QD
     Route: 048
     Dates: start: 2019
  2. GILENYA [Suspect]
     Active Substance: FINGOLIMOD HYDROCHLORIDE
     Dosage: 0.5 MG, QD
     Route: 048

REACTIONS (10)
  - Neuropathy peripheral [Not Recovered/Not Resolved]
  - Suicidal ideation [Unknown]
  - Multiple sclerosis relapse [Unknown]
  - Hypometabolism [Recovering/Resolving]
  - Anxiety [Not Recovered/Not Resolved]
  - Depressive symptom [Not Recovered/Not Resolved]
  - Constipation [Recovering/Resolving]
  - Urinary tract infection [Not Recovered/Not Resolved]
  - Muscle rigidity [Not Recovered/Not Resolved]
  - Gastroenteritis [Unknown]

NARRATIVE: CASE EVENT DATE: 20220101
